FAERS Safety Report 5110428-2 (Version None)
Quarter: 2006Q3

REPORT INFORMATION
  Report Type: 
  Country: None (occurrence: None)
  Receive Date: 20060921
  Receipt Date: 20010430
  Transmission Date: 20061208
  Serious: Yes (Hospitalization)
  Sender: FDA-Public Use
  Company Number: US-ROCHE-259785

PATIENT
  Age: 17 Year
  Sex: Female
  Weight: 68 kg

DRUGS (1)
  1. ACCUTANE [Suspect]
     Indication: ACNE
     Dosage: 20 MG QAM, 40 MG QPM.
     Route: 048
     Dates: start: 19991104, end: 20000422

REACTIONS (3)
  - COLON CANCER [None]
  - HAEMOPTYSIS [None]
  - METASTASES TO LUNG [None]
